FAERS Safety Report 18367377 (Version 6)
Quarter: 2021Q1

REPORT INFORMATION
  Report Type: Spontaneous
  Country: FR (occurrence: FR)
  Receive Date: 20201009
  Receipt Date: 20210105
  Transmission Date: 20210419
  Serious: Yes (Life-Threatening, Hospitalization, Disabling, Other)
  Sender: FDA-Public Use
  Company Number: NVSC2020FR271045

PATIENT
  Age: 61 Year
  Sex: Male

DRUGS (10)
  1. PREDNISONE. [Suspect]
     Active Substance: PREDNISONE
     Indication: ORBITAL MYOSITIS
     Dosage: 20 MG, QD
     Route: 048
     Dates: start: 201601, end: 201607
  2. VORICONAZOLE. [Suspect]
     Active Substance: VORICONAZOLE
     Dosage: 8 MG/KG, QD
     Route: 042
     Dates: start: 201607, end: 201607
  3. PREDNISONE. [Suspect]
     Active Substance: PREDNISONE
     Indication: MASS
     Dosage: 70 MG, QD
     Route: 048
     Dates: start: 201601, end: 201607
  4. METHYLPREDNISOLONE. [Suspect]
     Active Substance: METHYLPREDNISOLONE
     Indication: MASS
     Dosage: 5 BOLUS OF 3 DAYS
     Route: 065
     Dates: start: 201601, end: 201607
  5. VORICONAZOLE. [Suspect]
     Active Substance: VORICONAZOLE
     Dosage: UNK
     Route: 065
     Dates: start: 2016, end: 2017
  6. VORICONAZOLE. [Suspect]
     Active Substance: VORICONAZOLE
     Indication: ASPERGILLUS INFECTION
     Dosage: 12 MG/KG, QD, FIRST DOSE (LOADING DOSE)
     Route: 042
     Dates: start: 201607, end: 201607
  7. VORICONAZOLE. [Suspect]
     Active Substance: VORICONAZOLE
     Dosage: 400 MG/KG, QD
     Route: 048
     Dates: start: 201608, end: 201610
  8. METHYLPREDNISOLONE. [Suspect]
     Active Substance: METHYLPREDNISOLONE
     Indication: ORBITAL MYOSITIS
     Dosage: 5 BOLUS OF 3 DAYS
     Route: 065
     Dates: start: 201601, end: 201607
  9. AMBISOME [Concomitant]
     Active Substance: AMPHOTERICIN B
     Dosage: 3 MG/KG, QD
     Route: 065
     Dates: start: 2016
  10. AMBISOME [Concomitant]
     Active Substance: AMPHOTERICIN B
     Indication: EVIDENCE BASED TREATMENT
     Dosage: 5 MG/KG, QD, FOLLOWED BY 3MG/KG DAILY
     Route: 065
     Dates: start: 2016, end: 2016

REACTIONS (11)
  - Orbital myositis [Not Recovered/Not Resolved]
  - Blindness [Not Recovered/Not Resolved]
  - Osteolysis [Recovered/Resolved]
  - Nephropathy toxic [Unknown]
  - Cerebral aspergillosis [Recovering/Resolving]
  - Aspergillus infection [Recovering/Resolving]
  - Paraesthesia [Unknown]
  - Cranial nerve disorder [Recovered/Resolved]
  - Blindness unilateral [Not Recovered/Not Resolved]
  - Drug ineffective [Unknown]
  - Condition aggravated [Recovering/Resolving]

NARRATIVE: CASE EVENT DATE: 201607
